FAERS Safety Report 17172154 (Version 1)
Quarter: 2019Q4

REPORT INFORMATION
  Report Type: Spontaneous
  Country: AT (occurrence: AT)
  Receive Date: 20191218
  Receipt Date: 20191218
  Transmission Date: 20200122
  Serious: Yes (Other)
  Sender: FDA-Public Use
  Company Number: AT-MYLANLABS-2019M1124406

PATIENT
  Sex: Female

DRUGS (2)
  1. MIRTAZAPINE. [Concomitant]
     Active Substance: MIRTAZAPINE
     Indication: ANTIDEPRESSANT THERAPY
     Dosage: UNK
  2. ESCITALOPRAM [Suspect]
     Active Substance: ESCITALOPRAM OXALATE
     Indication: ANTIDEPRESSANT THERAPY
     Dosage: 20 MILLIGRAM

REACTIONS (2)
  - Ventricular arrhythmia [Unknown]
  - Parkinsonism [Unknown]
